FAERS Safety Report 8394376-0 (Version None)
Quarter: 2012Q2

REPORT INFORMATION
  Report Type: 
  Country: None (occurrence: None)
  Receive Date: 20120530
  Receipt Date: 20120522
  Transmission Date: 20120825
  Serious: Yes (Other)
  Sender: FDA-Public Use
  Company Number: US-JNJFOC-20120313817

PATIENT
  Sex: Male

DRUGS (3)
  1. XARELTO [Suspect]
     Indication: THROMBOSIS PROPHYLAXIS
     Route: 048
     Dates: start: 20111218, end: 20111230
  2. ASPIRIN [Concomitant]
  3. DOXYCYCLINE [Concomitant]

REACTIONS (1)
  - RASH GENERALISED [None]
